FAERS Safety Report 24835309 (Version 1)
Quarter: 2025Q1

REPORT INFORMATION
  Report Type: Spontaneous
  Country: US (occurrence: US)
  Receive Date: 20250113
  Receipt Date: 20250113
  Transmission Date: 20250409
  Serious: Yes (Hospitalization, Other)
  Sender: JOHNSON AND JOHNSON
  Company Number: US-JNJFOC-20250111528

PATIENT
  Sex: Female

DRUGS (1)
  1. XARELTO [Suspect]
     Active Substance: RIVAROXABAN
     Indication: Deep vein thrombosis
     Route: 048

REACTIONS (6)
  - Uterine haemorrhage [Unknown]
  - Thrombosis [Unknown]
  - Deep vein thrombosis [Unknown]
  - Hospitalisation [Unknown]
  - Pneumonia [Unknown]
  - Cerebral disorder [Unknown]

NARRATIVE: CASE EVENT DATE: 20241201
